FAERS Safety Report 5297743-7 (Version None)
Quarter: 2007Q2

REPORT INFORMATION
  Report Type: 
  Country: None (occurrence: None)
  Receive Date: 20070412
  Receipt Date: 20070412
  Transmission Date: 20071010
  Serious: Yes (Other)
  Sender: FDA-Public Use
  Company Number: None

PATIENT
  Age: 40 Year
  Sex: Male
  Weight: 74.8435 kg

DRUGS (2)
  1. PRILOSEC OTC [Suspect]
     Indication: GASTROOESOPHAGEAL REFLUX DISEASE
     Dosage: 14 DAY COURSE 1 / DAY PO
     Route: 048
     Dates: start: 20070315, end: 20070330
  2. PRILOSEC OTC [Suspect]
     Indication: SLEEP DISORDER
     Dosage: 14 DAY COURSE 1 / DAY PO
     Route: 048
     Dates: start: 20070315, end: 20070330

REACTIONS (3)
  - ABDOMINAL PAIN LOWER [None]
  - CONDITION AGGRAVATED [None]
  - GASTROOESOPHAGEAL REFLUX DISEASE [None]
